FAERS Safety Report 17150404 (Version 2)
Quarter: 2019Q4

REPORT INFORMATION
  Report Type: Report from Study
  Country: US (occurrence: US)
  Receive Date: 20191213
  Receipt Date: 20191218
  Transmission Date: 20200122
  Serious: Yes (Other)
  Sender: FDA-Public Use
  Company Number: US-GLAXOSMITHKLINE-US2019AMR223898

PATIENT
  Age: 45 Year
  Sex: Male

DRUGS (3)
  1. CYTOXAN [Suspect]
     Active Substance: CYCLOPHOSPHAMIDE
     Indication: PRODUCT USED FOR UNKNOWN INDICATION
     Dosage: UNK
     Route: 065
  2. BELIMUMAB [Suspect]
     Active Substance: BELIMUMAB
     Indication: SYSTEMIC LUPUS ERYTHEMATOSUS
     Dosage: UNK
     Route: 065
     Dates: start: 201908
  3. CELLCEPT [Suspect]
     Active Substance: MYCOPHENOLATE MOFETIL\MYCOPHENOLATE MOFETIL HYDROCHLORIDE
     Indication: PRODUCT USED FOR UNKNOWN INDICATION
     Dosage: UNK
     Route: 065

REACTIONS (33)
  - Peripheral swelling [Unknown]
  - Gout [Unknown]
  - Hypertension [Unknown]
  - Pyrexia [Unknown]
  - Musculoskeletal pain [Unknown]
  - Headache [Unknown]
  - Memory impairment [Unknown]
  - Pain in extremity [Unknown]
  - Protein urine present [Unknown]
  - Oedema [Unknown]
  - Tendonitis [Unknown]
  - Fatigue [Unknown]
  - Diarrhoea [Unknown]
  - Feeling abnormal [Unknown]
  - Rash [Unknown]
  - Pruritus [Unknown]
  - C-reactive protein increased [Unknown]
  - Arthralgia [Unknown]
  - Joint swelling [Unknown]
  - Dyspnoea [Unknown]
  - Condition aggravated [Unknown]
  - Inflammatory marker increased [Unknown]
  - Drug ineffective [Unknown]
  - Renal impairment [Unknown]
  - Nausea [Unknown]
  - Arthritis [Not Recovered/Not Resolved]
  - Arthritis [Unknown]
  - Eczema [Unknown]
  - Pharyngitis streptococcal [Unknown]
  - Myalgia [Unknown]
  - Pain [Recovering/Resolving]
  - Dizziness [Unknown]
  - Nail disorder [Unknown]

NARRATIVE: CASE EVENT DATE: 201912
